FAERS Safety Report 5390540-3 (Version None)
Quarter: 2007Q3

REPORT INFORMATION
  Report Type: 
  Country: None (occurrence: None)
  Receive Date: 20070718
  Receipt Date: 20070423
  Transmission Date: 20080115
  Serious: No
  Sender: FDA-Public Use
  Company Number: US-KINGPHARMUSA00001-K200700508

PATIENT

DRUGS (2)
  1. LEVOXYL [Suspect]
     Indication: HORMONE REPLACEMENT THERAPY
     Dosage: 100 MCG, QD
     Route: 048
     Dates: start: 20070101, end: 20070201
  2. LEVOXYL [Suspect]
     Dosage: 125 MCG, QD
     Route: 048
     Dates: start: 20070201

REACTIONS (1)
  - ALOPECIA [None]
